FAERS Safety Report 6942920-X (Version None)
Quarter: 2010Q3

REPORT INFORMATION
  Report Type: 
  Country: None (occurrence: None)
  Receive Date: 20100826
  Receipt Date: 20100817
  Transmission Date: 20110219
  Serious: Yes (Other)
  Sender: FDA-Public Use
  Company Number: DE-ROCHE-723153

PATIENT
  Sex: Male
  Weight: 82 kg

DRUGS (5)
  1. BEVACIZUMAB [Suspect]
     Route: 042
     Dates: start: 20081216, end: 20100413
  2. CALCIUMFOLINAT [Suspect]
     Route: 042
     Dates: start: 20071101, end: 20100413
  3. OXALIPLATIN [Suspect]
     Route: 042
     Dates: start: 20071101, end: 20080410
  4. FLUOROURACIL [Suspect]
     Route: 042
     Dates: start: 20071101, end: 20100414
  5. IRINOTECAN HCL [Concomitant]
     Dates: start: 20081216, end: 20090616

REACTIONS (2)
  - ALVEOLITIS [None]
  - INTERSTITIAL LUNG DISEASE [None]
